FAERS Safety Report 8624139-X (Version None)
Quarter: 2012Q3

REPORT INFORMATION
  Report Type: 
  Country: None (occurrence: None)
  Receive Date: 20120827
  Receipt Date: 20120817
  Transmission Date: 20120928
  Serious: Yes (Hospitalization)
  Sender: FDA-Public Use
  Company Number: BR-ASTRAZENECA-2012SE60565

PATIENT
  Age: 34 Year
  Sex: Female
  Weight: 55 kg

DRUGS (2)
  1. ARIMIDEX [Suspect]
     Indication: BREAST CANCER
     Route: 048
  2. NOLVADEX [Suspect]
     Indication: BREAST CANCER
     Route: 048
     Dates: start: 20070101, end: 20100101

REACTIONS (3)
  - OFF LABEL USE [None]
  - OVULATION DISORDER [None]
  - BREAST CANCER RECURRENT [None]
